FAERS Safety Report 5228850-2 (Version None)
Quarter: 2007Q1

REPORT INFORMATION
  Report Type: 
  Country: None (occurrence: None)
  Receive Date: 20070205
  Receipt Date: 20070130
  Transmission Date: 20070707
  Serious: Yes (Other)
  Sender: FDA-Public Use
  Company Number: FR-ROCHE-460641

PATIENT
  Age: 44 Year
  Sex: Male

DRUGS (31)
  1. ZENAPAX [Suspect]
     Route: 042
     Dates: start: 20060109, end: 20060109
  2. ZENAPAX [Suspect]
     Route: 042
     Dates: start: 20060116, end: 20060116
  3. MYCOPHENOLATE MOFETIL [Suspect]
     Route: 042
     Dates: start: 20060109, end: 20060109
  4. MYCOPHENOLATE MOFETIL [Suspect]
     Route: 042
     Dates: start: 20060110, end: 20060113
  5. MYCOPHENOLATE MOFETIL [Suspect]
     Route: 042
     Dates: start: 20060114, end: 20060114
  6. MYCOPHENOLATE MOFETIL [Suspect]
     Route: 048
     Dates: start: 20060114, end: 20060114
  7. MYCOPHENOLATE MOFETIL [Suspect]
     Route: 048
     Dates: start: 20060115, end: 20060531
  8. MYCOPHENOLATE MOFETIL [Suspect]
     Route: 048
     Dates: start: 20060601, end: 20060703
  9. TACROLIMUS [Suspect]
     Dosage: ADJUSTED TO REACH PREDEFINED TARGET LEVELS
     Route: 048
     Dates: start: 20060114, end: 20060703
  10. METHYLPREDNISOLONE 16MG TAB [Suspect]
     Route: 065
     Dates: start: 20060109
  11. PIPERILLINE [Concomitant]
     Indication: PROPHYLAXIS
     Dates: start: 20060109, end: 20060113
  12. ZOVIRAX [Concomitant]
     Dates: start: 20060109, end: 20060114
  13. HEPARIN [Concomitant]
     Indication: THROMBOSIS PROPHYLAXIS
     Dates: start: 20060110, end: 20060203
  14. ZELITREX [Concomitant]
     Dates: start: 20060115
  15. FRAXIPARINE [Concomitant]
     Indication: THROMBOSIS PROPHYLAXIS
     Dates: start: 20060203, end: 20060316
  16. ASPEGIC 1000 [Concomitant]
     Indication: THROMBOSIS PROPHYLAXIS
     Dates: start: 20060317
  17. INIPOMP [Concomitant]
     Indication: PROPHYLAXIS
     Dates: start: 20060109
  18. ZEFFIX [Concomitant]
     Dates: start: 20060110
  19. BURINEX [Concomitant]
     Dates: start: 20060112, end: 20060116
  20. ACETYLCYSTEINE [Concomitant]
     Dates: start: 20060117, end: 20060117
  21. KAYEXALATE [Concomitant]
     Indication: PROPHYLAXIS
     Dates: start: 20060120, end: 20060120
  22. OXACILLIN [Concomitant]
     Dates: start: 20060123, end: 20060206
  23. ATARAX [Concomitant]
     Indication: ANXIETY
     Dates: start: 20060124, end: 20060209
  24. TARGOCID [Concomitant]
     Dates: start: 20060123, end: 20060123
  25. SKENAN [Concomitant]
     Dates: start: 20060220, end: 20060316
  26. PERFALGAN [Concomitant]
     Dates: start: 20060116, end: 20060202
  27. MORPHINE [Concomitant]
     Dates: start: 20060110, end: 20060124
  28. ACUPAN [Concomitant]
     Dates: start: 20060120, end: 20060124
  29. IMODIUM [Concomitant]
     Indication: DIARRHOEA
     Dates: start: 20060126, end: 20060207
  30. DOLIPRANE [Concomitant]
     Dates: start: 20060205, end: 20060206
  31. DAFALGAN [Concomitant]
     Dates: start: 20060208, end: 20060216

REACTIONS (1)
  - HUMAN HERPESVIRUS 8 INFECTION [None]
